FAERS Safety Report 5318868-3 (Version None)
Quarter: 2007Q1

REPORT INFORMATION
  Report Type: 
  Country: None (occurrence: None)
  Receive Date: 20070201
  Receipt Date: 20061221
  Transmission Date: 20070707
  Serious: No
  Sender: FDA-Public Use
  Company Number: VNL_0350_2006

PATIENT
  Age: 64 Year
  Sex: Male
  Weight: 70.3075 kg

DRUGS (10)
  1. APOKYN [Suspect]
     Indication: PARKINSON'S DISEASE
     Dosage: 0.2 ML PRN SC
     Route: 058
     Dates: start: 20061213
  2. STALEVO 100 [Concomitant]
  3. MIRAPEX [Concomitant]
  4. PREVACID [Concomitant]
  5. ACIPHEX [Concomitant]
  6. TOPROL-XL [Concomitant]
  7. FLOMAX [Concomitant]
  8. VESICARE [Concomitant]
  9. KLONOPIN [Concomitant]
  10. TIGAN [Concomitant]

REACTIONS (7)
  - ASTHENIA [None]
  - BLOOD PRESSURE DECREASED [None]
  - DIZZINESS [None]
  - DRUG INEFFECTIVE [None]
  - NAUSEA [None]
  - PAIN OF SKIN [None]
  - PHARMACEUTICAL PRODUCT COMPLAINT [None]
